FAERS Safety Report 5211288-1 (Version None)
Quarter: 2007Q1

REPORT INFORMATION
  Report Type: 
  Country: None (occurrence: None)
  Receive Date: 20061130
  Receipt Date: 20060503
  Transmission Date: 20070707
  Serious: Yes (Other)
  Sender: FDA-Public Use
  Company Number: WAES 0605USA00698

PATIENT
  Age: 63 Year
  Sex: Female
  Weight: 91.6266 kg

DRUGS (1)
  1. FOSAMAX [Suspect]
     Indication: OSTEOPOROSIS
     Dosage: 70 MG/WKY/PO
     Route: 048
     Dates: start: 20010101, end: 20060301

REACTIONS (2)
  - MUCOSAL INFLAMMATION [None]
  - OSTEONECROSIS [None]
